FAERS Safety Report 4488370-X (Version None)
Quarter: 2004Q4

REPORT INFORMATION
  Report Type: 
  Country: None (occurrence: None)
  Receive Date: 20041028
  Receipt Date: 20041020
  Transmission Date: 20050328
  Serious: Yes (Hospitalization)
  Sender: FDA-Public Use
  Company Number: US-AMGEN-US096625

PATIENT
  Age: 52 Year
  Sex: Female

DRUGS (2)
  1. PROCRIT [Suspect]
     Indication: ANAEMIA
     Dates: start: 20041013
  2. COUMADIN [Concomitant]

REACTIONS (5)
  - FACE OEDEMA [None]
  - FATIGUE [None]
  - HYPERAESTHESIA [None]
  - HYPERSENSITIVITY [None]
  - LARYNGEAL DISORDER [None]
